FAERS Safety Report 15829071 (Version 1)
Quarter: 2019Q1

REPORT INFORMATION
  Report Type: Spontaneous
  Country: CZ (occurrence: CZ)
  Receive Date: 20190115
  Receipt Date: 20190115
  Transmission Date: 20190417
  Serious: Yes (Other)
  Sender: FDA-Public Use
  Company Number: PHHY2019CZ002614

PATIENT
  Age: 74 Year
  Sex: Male

DRUGS (4)
  1. PEMETREXED. [Concomitant]
     Active Substance: PEMETREXED
     Indication: LUNG ADENOCARCINOMA
     Dosage: 1 CYCLICAL
     Route: 065
     Dates: start: 201405
  2. DOCETAXEL. [Suspect]
     Active Substance: DOCETAXEL
     Indication: LUNG ADENOCARCINOMA
     Dosage: 80 MG/M2, UNK, 6 CYCLES
     Route: 065
     Dates: start: 201410, end: 201502
  3. CISPLATIN. [Concomitant]
     Active Substance: CISPLATIN
     Indication: LUNG ADENOCARCINOMA
     Dosage: 1 CYCLICAL
     Route: 065
     Dates: start: 201405
  4. NINTEDANIB [Concomitant]
     Active Substance: NINTEDANIB
     Indication: LUNG ADENOCARCINOMA
     Dosage: 150 MG, BID (DURING DAYS 2 TO 21, TOTAL 6 CYCLES)
     Route: 048
     Dates: start: 201410, end: 201502

REACTIONS (3)
  - Anaemia [Unknown]
  - Bone marrow failure [Unknown]
  - Neutropenia [Unknown]

NARRATIVE: CASE EVENT DATE: 201410
